FAERS Safety Report 9227478 (Version 1)
Quarter: 2013Q1

REPORT INFORMATION
  Report Type: Spontaneous
  Country: US (occurrence: None)
  Receive Date: 20121004
  Receipt Date: 20121004
  Transmission Date: 20140127
  Serious: Yes (Other)
  Sender: FDA-Public Use
  Company Number: PHEH2012US006485

PATIENT
  Age: 53 Year
  Sex: Female

DRUGS (3)
  1. COMBIPATCH [Suspect]
     Dates: end: 201203
  2. ATENOLOL ( ATENOLOL) [Concomitant]
  3. CALCIUM\VITAMIN D [Concomitant]

REACTIONS (1)
  - Blood pressure increased [None]
